FAERS Safety Report 6026292-3 (Version None)
Quarter: 2008Q4

REPORT INFORMATION
  Report Type: 
  Country: None (occurrence: None)
  Receive Date: 20081230
  Receipt Date: 20081216
  Transmission Date: 20090506
  Serious: Yes (Life-Threatening, Hospitalization, Other)
  Sender: FDA-Public Use
  Company Number: 2008AL012526

PATIENT
  Age: 67 Year
  Sex: Female

DRUGS (3)
  1. DICLOFENAC SODIUM [Suspect]
     Indication: RHEUMATOID ARTHRITIS
     Dosage: 75 MG;BID;PO
     Route: 048
     Dates: start: 20010101, end: 20080828
  2. METHOTREXATE [Concomitant]
  3. CANDESARTAN CILEXETIL [Concomitant]

REACTIONS (8)
  - BLOOD CREATININE INCREASED [None]
  - BONE MARROW FAILURE [None]
  - CARDIAC FAILURE CONGESTIVE [None]
  - DRUG INTERACTION [None]
  - DRUG TOXICITY [None]
  - PNEUMONIA [None]
  - STREPTOCOCCAL SEPSIS [None]
  - UPPER GASTROINTESTINAL HAEMORRHAGE [None]
